FAERS Safety Report 5452418-6 (Version None)
Quarter: 2007Q3

REPORT INFORMATION
  Report Type: 
  Country: None (occurrence: None)
  Receive Date: 20070914
  Receipt Date: 20070906
  Transmission Date: 20080115
  Serious: Yes (Hospitalization)
  Sender: FDA-Public Use
  Company Number: US-ELI_LILLY_AND_COMPANY-US200709001164

PATIENT
  Age: 43 Year
  Sex: Male
  Weight: 97.732 kg

DRUGS (8)
  1. SOMATROPIN [Suspect]
     Indication: HYPOPITUITARISM
     Dosage: 0.1 MG, DAILY (1/D)
     Route: 058
     Dates: start: 20061221, end: 20070315
  2. TRICOR [Concomitant]
     Dosage: 600 MG, DAILY (1/D)
  3. NEXIUM [Concomitant]
     Dosage: 40 MG, DAILY (1/D)
  4. VITAMIN D [Concomitant]
     Dosage: UNK, WEEKLY (1/W)
  5. PAXIL [Concomitant]
     Dosage: 45 MG, DAILY (1/D)
  6. SYNTHROID [Concomitant]
     Dosage: 88 UG, UNK
     Route: 050
  7. SYNTHROID [Concomitant]
     Dosage: 100 UG, OTHER
  8. CALCIUM [Concomitant]
     Dosage: 500 MG, DAILY (1/D)

REACTIONS (1)
  - THYROID CANCER [None]
